FAERS Safety Report 8795008 (Version 1)
Quarter: 2012Q4

REPORT INFORMATION
  Report Type: Report from Study
  Country: HU (occurrence: HU)
  Receive Date: 20120917
  Receipt Date: 20120917
  Transmission Date: 20130627
  Serious: Yes (Hospitalization, Other)
  Sender: FDA-Public Use
  Company Number: HU-ROCHE-1126167

PATIENT
  Sex: Male

DRUGS (2)
  1. XELODA [Suspect]
     Indication: COLORECTAL CANCER
     Dosage: dose: 2x4
     Route: 048
     Dates: start: 20090707, end: 201008
  2. XELODA [Suspect]
     Indication: METASTASIS

REACTIONS (3)
  - Pain in extremity [Unknown]
  - Fall [Unknown]
  - Disease progression [Unknown]
